FAERS Safety Report 6740489-6 (Version None)
Quarter: 2010Q2

REPORT INFORMATION
  Report Type: 
  Country: None (occurrence: None)
  Receive Date: 20100525
  Receipt Date: 20100510
  Transmission Date: 20101027
  Serious: Yes (Other)
  Sender: FDA-Public Use
  Company Number: IL-BRISTOL-MYERS SQUIBB COMPANY-15073638

PATIENT
  Age: 57 Year
  Sex: Female

DRUGS (1)
  1. MITOMYCIN-C [Suspect]
     Indication: CONJUNCTIVAL PRIMARY ACQUIRED MELANOSIS
     Dosage: 1DF=1COURSE OF 02% AND 2COURSES OF 0.04%
     Route: 061

REACTIONS (1)
  - CORNEAL EPITHELIUM DEFECT [None]
